FAERS Safety Report 7109677-3 (Version None)
Quarter: 2010Q4

REPORT INFORMATION
  Report Type: 
  Country: None (occurrence: None)
  Receive Date: 20101115
  Receipt Date: 20101115
  Transmission Date: 20110411
  Serious: Yes (Death, Hospitalization)
  Sender: FDA-Public Use
  Company Number: None

PATIENT
  Sex: Male
  Weight: 72.3 kg

DRUGS (2)
  1. CARBOPLATIN [Suspect]
     Dosage: 760 MG
     Dates: end: 20101006
  2. TAXOL [Suspect]
     Dosage: 372 MG
     Dates: end: 20101006

REACTIONS (10)
  - HAEMOGLOBIN DECREASED [None]
  - LEUKOCYTOSIS [None]
  - MALIGNANT NEOPLASM PROGRESSION [None]
  - NON-SMALL CELL LUNG CANCER STAGE IIIA [None]
  - OEDEMA [None]
  - PNEUMONIA [None]
  - PSEUDOMONAS TEST POSITIVE [None]
  - PULMONARY ARTERY STENOSIS [None]
  - RASH [None]
  - REFUSAL OF TREATMENT BY PATIENT [None]
